FAERS Safety Report 11195264 (Version 1)
Quarter: 2015Q2

REPORT INFORMATION
  Report Type: Spontaneous
  Country: FR (occurrence: None)
  Receive Date: 20150615
  Receipt Date: 20150615
  Transmission Date: 20150821
  Serious: Yes (Other)
  Sender: FDA-Public Use
  Company Number: FK201502827

PATIENT
  Age: 22 Year
  Sex: Female

DRUGS (1)
  1. ROPIVACAINE HYDROCHLORIDE. [Suspect]
     Active Substance: ROPIVACAINE HYDROCHLORIDE
     Indication: CAESAREAN SECTION
     Route: 008
     Dates: start: 20140131

REACTIONS (6)
  - Logorrhoea [None]
  - Drug level above therapeutic [None]
  - Depressed level of consciousness [None]
  - Maternal exposure during delivery [None]
  - Headache [None]
  - Toxicity to various agents [None]

NARRATIVE: CASE EVENT DATE: 20140131
